FAERS Safety Report 7799186-0 (Version None)
Quarter: 2011Q4

REPORT INFORMATION
  Report Type: 
  Country: None (occurrence: None)
  Receive Date: 20111006
  Receipt Date: 20110926
  Transmission Date: 20120403
  Serious: Yes (Hospitalization)
  Sender: FDA-Public Use
  Company Number: FR-SANOFI-AVENTIS-2010SA062100

PATIENT
  Age: 51 Year
  Sex: Female
  Weight: 65 kg

DRUGS (2)
  1. GRANOCYTE [Concomitant]
     Dates: start: 20100919
  2. TAXOTERE [Suspect]
     Indication: BREAST CANCER
     Route: 042
     Dates: end: 20100913

REACTIONS (8)
  - GAIT DISTURBANCE [None]
  - MYALGIA [None]
  - BLOOD CREATINE PHOSPHOKINASE INCREASED [None]
  - GENERALISED OEDEMA [None]
  - WHITE BLOOD CELL COUNT INCREASED [None]
  - MYOSITIS [None]
  - RHABDOMYOLYSIS [None]
  - WEIGHT INCREASED [None]
